FAERS Safety Report 9478460 (Version 3)
Quarter: 2013Q4

REPORT INFORMATION
  Report Type: Report from Study
  Country: AU (occurrence: AU)
  Receive Date: 20130827
  Receipt Date: 20131004
  Transmission Date: 20140711
  Serious: Yes (Hospitalization)
  Sender: FDA-Public Use
  Company Number: AU-PFIZER INC-2013238173

PATIENT
  Age: 79 Year
  Sex: Female
  Weight: 62.5 kg

DRUGS (10)
  1. TOFACITINIB CITRATE [Suspect]
     Indication: RHEUMATOID ARTHRITIS
     Dosage: 10 MG, 2X/DAY
     Route: 048
     Dates: start: 20101016
  2. PLAQUENIL [Concomitant]
     Indication: RHEUMATOID ARTHRITIS
     Dosage: 200 MG, 1X/DAY
     Route: 048
     Dates: start: 200701
  3. PREDNISOLONE [Concomitant]
     Indication: RHEUMATOID ARTHRITIS
     Dosage: 2 MG, 1X/DAY
     Route: 048
     Dates: start: 20080715
  4. MEGAFOL [Concomitant]
     Indication: RHEUMATOID ARTHRITIS
     Dosage: 5 MG, 1X/DAY
     Route: 048
     Dates: start: 1993
  5. MICARDIS [Concomitant]
     Indication: HYPERTENSION
     Dosage: 40 MG, 1X/DAY
     Route: 048
     Dates: start: 200810
  6. OSTELIN [Concomitant]
     Indication: HYPERPARATHYROIDISM
     Dosage: 1 DF, 1X/DAY
     Route: 048
     Dates: start: 20081001
  7. PARIET [Concomitant]
     Indication: GASTROOESOPHAGEAL REFLUX DISEASE
     Dosage: 20 MG, 1X/DAY
     Route: 048
     Dates: start: 20091201
  8. METHOTREXATE [Concomitant]
     Indication: RHEUMATOID ARTHRITIS
     Dosage: 12.5 MG, WEEKLY
     Route: 048
     Dates: start: 20111014
  9. VITAMIN D [Concomitant]
     Indication: VITAMIN D DEFICIENCY
     Dosage: UNK
     Dates: start: 20120515
  10. FERROGRADUMET [Concomitant]
     Indication: ANAEMIA
     Dosage: UNK
     Dates: start: 20101112

REACTIONS (3)
  - Basal cell carcinoma [Recovered/Resolved]
  - Squamous cell carcinoma [Recovered/Resolved]
  - Actinic keratosis [Recovered/Resolved]
